FAERS Safety Report 4564769-8 (Version None)
Quarter: 2005Q1

REPORT INFORMATION
  Report Type: 
  Country: None (occurrence: None)
  Receive Date: 20050128
  Receipt Date: 20050118
  Transmission Date: 20050727
  Serious: Yes (Hospitalization, Other)
  Sender: FDA-Public Use
  Company Number: US-ABBOTT-05P-163-0287136-00

PATIENT
  Sex: Female
  Weight: 63.106 kg

DRUGS (4)
  1. SYNTHROID [Suspect]
     Indication: BLOOD THYROID STIMULATING HORMONE ABNORMAL
     Route: 048
     Dates: end: 20041001
  2. SYNTHROID [Suspect]
     Route: 048
     Dates: start: 20050108
  3. THYROXINE [Suspect]
     Indication: THYROIDECTOMY
     Route: 048
     Dates: start: 20041001, end: 20050108
  4. ESTROGENS CONJUGATED [Concomitant]
     Indication: HORMONE REPLACEMENT THERAPY
     Route: 048
     Dates: end: 20020101

REACTIONS (4)
  - ABDOMINAL STRANGULATED HERNIA [None]
  - BLOOD PRESSURE INCREASED [None]
  - DIARRHOEA [None]
  - NASOPHARYNGITIS [None]
